FAERS Safety Report 4431668-1 (Version None)
Quarter: 2004Q3

REPORT INFORMATION
  Report Type: 
  Country: None (occurrence: None)
  Receive Date: 20040721
  Receipt Date: 20040422
  Transmission Date: 20050211
  Serious: Yes (Other)
  Sender: FDA-Public Use
  Company Number: 2004027874

PATIENT
  Sex: Female

DRUGS (1)
  1. RELPAX [Suspect]
     Indication: MIGRAINE
     Dosage: 40 MG PRN, ORAL
     Route: 048
     Dates: start: 20030101

REACTIONS (3)
  - HYPOAESTHESIA [None]
  - RAYNAUD'S PHENOMENON [None]
  - SENSORY LOSS [None]
